FAERS Safety Report 7220901-9 (Version None)
Quarter: 2011Q1

REPORT INFORMATION
  Report Type: 
  Country: None (occurrence: None)
  Receive Date: 20110112
  Receipt Date: 20101102
  Transmission Date: 20110831
  Serious: No
  Sender: FDA-Public Use
  Company Number: A0888658A

PATIENT
  Age: 74 Year
  Sex: Male

DRUGS (6)
  1. AMLODIPINE BESYLATE [Concomitant]
  2. TRANDOLAPRIL [Concomitant]
  3. LEVOXYL [Concomitant]
  4. JALYN [Suspect]
     Indication: NOCTURIA
     Dosage: 1CAP PER DAY
     Route: 048
     Dates: start: 20100927
  5. COREG CR [Concomitant]
  6. GLIMEPIRIDE [Concomitant]

REACTIONS (2)
  - NOCTURIA [None]
  - DRUG INEFFECTIVE [None]
